FAERS Safety Report 8339925-3 (Version None)
Quarter: 2012Q2

REPORT INFORMATION
  Report Type: 
  Country: None (occurrence: None)
  Receive Date: 20120507
  Receipt Date: 20090116
  Transmission Date: 20120825
  Serious: No
  Sender: FDA-Public Use
  Company Number: US-TEVA-2009000189

PATIENT
  Sex: Female
  Weight: 102.6 kg

DRUGS (9)
  1. ZANTAC [Concomitant]
     Indication: PREMEDICATION
  2. RITUXAN [Concomitant]
     Indication: NON-HODGKIN'S LYMPHOMA
     Dates: start: 20090114
  3. ATACAND [Concomitant]
  4. TREANDA [Suspect]
     Indication: NON-HODGKIN'S LYMPHOMA
     Route: 042
     Dates: start: 20090115
  5. DECADRON [Concomitant]
     Indication: PREMEDICATION
  6. BENADRYL [Concomitant]
     Indication: PREMEDICATION
  7. SIMVASTATIN [Concomitant]
  8. ALLOPURINOL [Concomitant]
  9. LEXAPRO [Concomitant]

REACTIONS (1)
  - INFUSION SITE EXTRAVASATION [None]
